APPROVED DRUG PRODUCT: TIMENTIN
Active Ingredient: CLAVULANATE POTASSIUM; TICARCILLIN DISODIUM
Strength: EQ 1GM BASE/VIAL;EQ 30GM BASE/VIAL
Dosage Form/Route: INJECTABLE;INJECTION
Application: N050590 | Product #003
Applicant: GLAXOSMITHKLINE
Approved: Aug 18, 1987 | RLD: No | RS: No | Type: DISCN